FAERS Safety Report 8288046-7 (Version None)
Quarter: 2012Q2

REPORT INFORMATION
  Report Type: 
  Country: None (occurrence: None)
  Receive Date: 20120411
  Receipt Date: 20120411
  Transmission Date: 20120825
  Serious: No
  Sender: FDA-Public Use
  Company Number: None

PATIENT
  Sex: Female
  Weight: 65.4 kg

DRUGS (3)
  1. MAGNESIUM OXIDE (PHILLIPS) [Concomitant]
  2. CARBOPLATIN [Suspect]
     Dosage: 3065 MG
     Dates: end: 20120327
  3. TAXOL [Suspect]
     Dosage: 1791.9 MG
     Dates: end: 20120403

REACTIONS (6)
  - WHITE BLOOD CELL COUNT DECREASED [None]
  - PYREXIA [None]
  - DEHYDRATION [None]
  - COUGH [None]
  - ASTHENIA [None]
  - TACHYCARDIA [None]
